FAERS Safety Report 13684247 (Version 3)
Quarter: 2017Q3

REPORT INFORMATION
  Report Type: Report from Study
  Country: US (occurrence: US)
  Receive Date: 20170623
  Receipt Date: 20170705
  Transmission Date: 20171127
  Serious: Yes (Death, Other)
  Sender: FDA-Public Use
  Company Number: US-GILEAD-2017-0279800

PATIENT
  Age: 6 Year
  Sex: Female
  Weight: 28 kg

DRUGS (8)
  1. ALBUTEROL                          /00139501/ [Concomitant]
     Active Substance: ALBUTEROL
  2. TRAMADOL. [Concomitant]
     Active Substance: TRAMADOL
  3. APRED [Concomitant]
  4. LASIX [Concomitant]
     Active Substance: FUROSEMIDE
  5. AMBRISENTAN [Suspect]
     Active Substance: AMBRISENTAN
     Indication: PRODUCT USED FOR UNKNOWN INDICATION
     Dosage: 5 MG, QD
     Route: 048
     Dates: start: 20170524
  6. REMODULIN [Concomitant]
     Active Substance: TREPROSTINIL
  7. TADALAFIL [Concomitant]
     Active Substance: TADALAFIL
  8. DECADRON [Concomitant]
     Active Substance: DEXAMETHASONE

REACTIONS (3)
  - Death [Fatal]
  - Pain [Unknown]
  - Off label use [Recovered/Resolved]

NARRATIVE: CASE EVENT DATE: 20170524
